FAERS Safety Report 20653680 (Version 1)
Quarter: 2022Q1

REPORT INFORMATION
  Report Type: Spontaneous
  Country: IN (occurrence: IN)
  Receive Date: 20220330
  Receipt Date: 20220330
  Transmission Date: 20220424
  Serious: Yes (Hospitalization, Other)
  Sender: FDA-Public Use
  Company Number: IN-NOVARTISPH-NVSC2022IN069488

PATIENT
  Age: 16 Year
  Sex: Male

DRUGS (1)
  1. SIMULECT [Suspect]
     Active Substance: BASILIXIMAB
     Indication: Renal transplant
     Dosage: 20 MG
     Route: 042
     Dates: start: 20220302, end: 20220306

REACTIONS (3)
  - Kidney transplant rejection [Unknown]
  - Renal impairment [Unknown]
  - Urine output decreased [Unknown]

NARRATIVE: CASE EVENT DATE: 20220307
